FAERS Safety Report 23673975 (Version 1)
Quarter: 2024Q1

REPORT INFORMATION
  Report Type: Spontaneous
  Country: US (occurrence: US)
  Receive Date: 20240326
  Receipt Date: 20240326
  Transmission Date: 20240410
  Serious: No
  Sender: FDA-Public Use
  Company Number: US-FreseniusKabi-FK202404879

PATIENT
  Age: 31 Year
  Sex: Female
  Weight: 58.9 kg

DRUGS (1)
  1. DEXTROSE\MAGNESIUM SULFATE [Suspect]
     Active Substance: DEXTROSE\MAGNESIUM SULFATE
     Indication: Product used for unknown indication
     Dosage: FORM OF ADMIN: INJECTION?MAGNESIUM SULFATE 1 GRAM PACKAGING

REACTIONS (1)
  - Skin laceration [Recovered/Resolved]

NARRATIVE: CASE EVENT DATE: 20240311
